FAERS Safety Report 18191591 (Version 1)
Quarter: 2020Q3

REPORT INFORMATION
  Report Type: Spontaneous
  Country: US (occurrence: US)
  Receive Date: 20200825
  Receipt Date: 20200825
  Transmission Date: 20201103
  Serious: No
  Sender: FDA-Public Use
  Company Number: US-CIPLA LTD.-2020US03478

PATIENT

DRUGS (2)
  1. CIMZIA [Concomitant]
     Active Substance: CERTOLIZUMAB PEGOL
     Indication: PRODUCT USED FOR UNKNOWN INDICATION
     Dosage: UNK
     Route: 065
  2. DICLOFENAC [Suspect]
     Active Substance: DICLOFENAC
     Indication: ARTHRITIS
     Dosage: 4 GRAMS TO THE ENTIRE FOOT
     Route: 061
     Dates: start: 20200512, end: 20200512

REACTIONS (4)
  - Product use in unapproved indication [Unknown]
  - Product communication issue [Unknown]
  - Off label use [Unknown]
  - Product label confusion [Unknown]

NARRATIVE: CASE EVENT DATE: 20200512
